FAERS Safety Report 8479703-8 (Version None)
Quarter: 2012Q2

REPORT INFORMATION
  Report Type: 
  Country: None (occurrence: None)
  Receive Date: 20120629
  Receipt Date: 20120621
  Transmission Date: 20120825
  Serious: Yes (Hospitalization)
  Sender: FDA-Public Use
  Company Number: PR-ABBOTT-12P-131-0938831-00

PATIENT
  Sex: Female
  Weight: 54.934 kg

DRUGS (2)
  1. HUMIRA [Suspect]
     Indication: CROHN'S DISEASE
     Dosage: (160 MG, ONCE)
     Route: 058
     Dates: start: 20120401, end: 20120401
  2. HUMIRA [Suspect]
     Dosage: (80MG, ONCE)
     Route: 058
     Dates: start: 20120501, end: 20120501

REACTIONS (4)
  - VOMITING [None]
  - ABDOMINAL PAIN [None]
  - GASTROINTESTINAL INFLAMMATION [None]
  - VAGINAL INFECTION [None]
